FAERS Safety Report 9111166 (Version 1)
Quarter: 2013Q1

REPORT INFORMATION
  Report Type: Spontaneous
  Country: US (occurrence: US)
  Receive Date: 20130219
  Receipt Date: 20130219
  Transmission Date: 20140127
  Serious: No
  Sender: FDA-Public Use
  Company Number: US-BRISTOL-MYERS SQUIBB COMPANY-17086158

PATIENT
  Age: 62 Year
  Sex: Female
  Weight: 57.59 kg

DRUGS (3)
  1. ORENCIA [Suspect]
     Indication: RHEUMATOID ARTHRITIS
     Dosage: LAST INF: 28SEP12. DOSAGE:500MG(NOT SURE)
     Route: 042
     Dates: start: 201208
  2. ASPIRIN [Concomitant]
  3. ALEVE [Concomitant]
     Indication: BACK PAIN

REACTIONS (2)
  - Intervertebral disc disorder [Unknown]
  - Joint swelling [Not Recovered/Not Resolved]
